FAERS Safety Report 10150735 (Version 1)
Quarter: 2014Q2

REPORT INFORMATION
  Report Type: Spontaneous
  Country: US (occurrence: US)
  Receive Date: 20140502
  Receipt Date: 20140502
  Transmission Date: 20141212
  Serious: No
  Sender: FDA-Public Use
  Company Number: US-ASTRAZENECA-2013SE37284

PATIENT
  Age: 93 Year
  Sex: Female

DRUGS (5)
  1. PRILOSEC OTC [Suspect]
     Indication: GASTROOESOPHAGEAL REFLUX DISEASE
     Route: 048
  2. DIGOXIN [Suspect]
     Route: 065
  3. JANUVIA [Concomitant]
  4. ACTOS [Concomitant]
  5. UNSPECIFIED LOTS OF OTHER MEDICATIONS [Concomitant]

REACTIONS (2)
  - Blood glucose increased [Unknown]
  - Labelled drug-drug interaction medication error [Unknown]
